FAERS Safety Report 17617504 (Version 3)
Quarter: 2020Q3

REPORT INFORMATION
  Report Type: Report from Study
  Country: None (occurrence: US)
  Receive Date: 20200402
  Receipt Date: 20200701
  Transmission Date: 20201102
  Serious: Yes (Death, Hospitalization, Other)
  Sender: FDA-Public Use
  Company Number: US-BIOVITRUM-2019US3628

PATIENT
  Sex: Male

DRUGS (1)
  1. KINERET [Suspect]
     Active Substance: ANAKINRA
     Indication: GOUT
     Route: 058
     Dates: start: 20190528

REACTIONS (8)
  - Off label use [Not Recovered/Not Resolved]
  - Death [Fatal]
  - Ulcer [Unknown]
  - Neurofibroma [Not Recovered/Not Resolved]
  - Gastrointestinal haemorrhage [Unknown]
  - Diverticulitis [Unknown]
  - Helicobacter infection [Unknown]
  - Urinary tract infection [Unknown]
